FAERS Safety Report 11724713 (Version 1)
Quarter: 2015Q4

REPORT INFORMATION
  Report Type: Spontaneous
  Country: US (occurrence: US)
  Receive Date: 20151111
  Receipt Date: 20151111
  Transmission Date: 20160304
  Serious: No
  Sender: FDA-Public Use
  Company Number: US-UCBSA-2014005454

PATIENT
  Age: 52 Year
  Sex: Female

DRUGS (4)
  1. VIMPAT [Suspect]
     Active Substance: LACOSAMIDE
     Dosage: 200MG IN THE MORNING AND 250MG IN THE EVENING
  2. VIMPAT [Suspect]
     Active Substance: LACOSAMIDE
     Indication: FACIAL SPASM
     Dosage: 150 MG, 2X/DAY (BID)
     Dates: start: 201104
  3. VIMPAT [Suspect]
     Active Substance: LACOSAMIDE
     Dosage: 200 MG, 2X/DAY (BID)
  4. VIMPAT [Suspect]
     Active Substance: LACOSAMIDE
     Indication: OFF LABEL USE
     Dosage: 150 MG, 2X/DAY (BID)

REACTIONS (3)
  - Overdose [Unknown]
  - Off label use [Unknown]
  - Therapeutic response unexpected [Recovering/Resolving]
